FAERS Safety Report 18028477 (Version 1)
Quarter: 2020Q3

REPORT INFORMATION
  Report Type: Spontaneous
  Country: GB (occurrence: GB)
  Receive Date: 20200715
  Receipt Date: 20200715
  Transmission Date: 20201103
  Serious: Yes (Other)
  Sender: FDA-Public Use
  Company Number: NVSC2020GB197602

PATIENT
  Age: 30 Year
  Sex: Female
  Weight: 52 kg

DRUGS (1)
  1. METRONIDAZOLE. [Suspect]
     Active Substance: METRONIDAZOLE
     Indication: GASTROINTESTINAL BACTERIAL OVERGROWTH
     Dosage: 400 MG, UNKNOWN
     Route: 048
     Dates: start: 20200605

REACTIONS (4)
  - Somnolence [Not Recovered/Not Resolved]
  - Nausea [Not Recovered/Not Resolved]
  - Chromaturia [Not Recovered/Not Resolved]
  - Headache [Not Recovered/Not Resolved]

NARRATIVE: CASE EVENT DATE: 20200606
